FAERS Safety Report 10435530 (Version 1)
Quarter: 2014Q3

REPORT INFORMATION
  Report Type: Spontaneous
  Country: FR (occurrence: FR)
  Receive Date: 20140908
  Receipt Date: 20140908
  Transmission Date: 20150326
  Serious: Yes (Hospitalization)
  Sender: FDA-Public Use
  Company Number: FR-ROCHE-1458790

PATIENT
  Age: 80 Year
  Sex: Female

DRUGS (2)
  1. MABTHERA [Suspect]
     Active Substance: RITUXIMAB
     Indication: CHRONIC LYMPHOCYTIC LEUKAEMIA
     Dosage: 12.5 MG/M2, 2 INFUSIONS
     Route: 041
     Dates: start: 20140616, end: 20140715
  2. CHLORAMINOPHENE [Concomitant]
     Active Substance: CHLORAMBUCIL
     Indication: CHRONIC LYMPHOCYTIC LEUKAEMIA

REACTIONS (4)
  - Pyrexia [Recovered/Resolved]
  - Shock [Recovered/Resolved]
  - Oxygen saturation decreased [Recovered/Resolved]
  - Anaphylactic reaction [Recovered/Resolved]

NARRATIVE: CASE EVENT DATE: 20140616
